FAERS Safety Report 11908317 (Version 4)
Quarter: 2016Q1

REPORT INFORMATION
  Report Type: Spontaneous
  Country: US (occurrence: US)
  Receive Date: 20160111
  Receipt Date: 20160318
  Transmission Date: 20160526
  Serious: No
  Sender: FDA-Public Use
  Company Number: US-PFIZER INC-2016006462

PATIENT
  Age: 72 Year
  Sex: Female
  Weight: 131.52 kg

DRUGS (12)
  1. CALCIUM [Concomitant]
     Active Substance: CALCIUM
     Dosage: UNK
  2. OXYBUTYNIN [Concomitant]
     Active Substance: OXYBUTYNIN
     Dosage: UNK
  3. RENAL [Concomitant]
     Dosage: UNK
  4. CALCITRIOL. [Concomitant]
     Active Substance: CALCITRIOL
     Dosage: 0.25 MG, UNK
  5. CENTRUM SILVER [Concomitant]
     Active Substance: MINERALS\VITAMINS
     Dosage: UNK
  6. AMIODARONE [Concomitant]
     Active Substance: AMIODARONE
     Dosage: UNK
  7. MAGNESIUM [Concomitant]
     Active Substance: MAGNESIUM
     Dosage: UNK
  8. REVATIO [Suspect]
     Active Substance: SILDENAFIL CITRATE
     Indication: PULMONARY HYPERTENSION
     Dosage: UNKNOWN DOSE, 2X/DAY
     Dates: start: 2005
  9. TORSEMIDE. [Concomitant]
     Active Substance: TORSEMIDE
     Indication: GOUT
     Dosage: 20 MG, DAILY
  10. COREG [Concomitant]
     Active Substance: CARVEDILOL
     Indication: BLOOD PRESSURE MEASUREMENT
     Dosage: UNK
  11. PRILOSEC [Concomitant]
     Active Substance: OMEPRAZOLE MAGNESIUM
     Dosage: UNK
  12. TRACLEER [Concomitant]
     Active Substance: BOSENTAN
     Indication: PULMONARY HYPERTENSION
     Dosage: UNK

REACTIONS (3)
  - Vomiting [Not Recovered/Not Resolved]
  - Diarrhoea [Not Recovered/Not Resolved]
  - Nausea [Not Recovered/Not Resolved]

NARRATIVE: CASE EVENT DATE: 20160111
